FAERS Safety Report 9502673 (Version 1)
Quarter: 2013Q3

REPORT INFORMATION
  Report Type: Spontaneous
  Country: US (occurrence: US)
  Receive Date: 20130906
  Receipt Date: 20130906
  Transmission Date: 20140515
  Serious: No
  Sender: FDA-Public Use
  Company Number: US-009507513-1308USA011518

PATIENT
  Age: 78 Year
  Sex: Male

DRUGS (1)
  1. ZETIA [Suspect]
     Indication: BLOOD CHOLESTEROL INCREASED
     Dosage: 10 MG, FREQUENCY UNSPECIFIED
     Route: 048
     Dates: start: 20130711, end: 20130821

REACTIONS (1)
  - Decreased appetite [Unknown]
